FAERS Safety Report 15665400 (Version 1)
Quarter: 2018Q4

REPORT INFORMATION
  Report Type: Spontaneous
  Country: US (occurrence: US)
  Receive Date: 20181127
  Receipt Date: 20181127
  Transmission Date: 20190205
  Serious: Yes (Other)
  Sender: FDA-Public Use
  Company Number: None

PATIENT
  Age: 70 Year
  Sex: Female

DRUGS (2)
  1. MULTIPLE CARDIAC MEDS [Concomitant]
  2. KRATOM [Suspect]
     Active Substance: MITRAGYNINE\HERBALS
     Indication: PAIN

REACTIONS (4)
  - Tremor [None]
  - Extra dose administered [None]
  - Hypertension [None]
  - Anxiety [None]
